FAERS Safety Report 4916029-0 (Version None)
Quarter: 2006Q1

REPORT INFORMATION
  Report Type: 
  Country: None (occurrence: None)
  Receive Date: 20060214
  Receipt Date: 20060206
  Transmission Date: 20060701
  Serious: Yes (Death, Other)
  Sender: FDA-Public Use
  Company Number: 200610685BWH

PATIENT

DRUGS (1)
  1. AVELOX [Suspect]

REACTIONS (2)
  - ILL-DEFINED DISORDER [None]
  - SUDDEN DEATH [None]
